FAERS Safety Report 19448984 (Version 1)
Quarter: 2021Q2

REPORT INFORMATION
  Report Type: Spontaneous
  Country: US (occurrence: US)
  Receive Date: 20210622
  Receipt Date: 20210622
  Transmission Date: 20210717
  Serious: No
  Sender: FDA-Public Use
  Company Number: US-ORGANON-O2106USA000555

PATIENT

DRUGS (1)
  1. REMERON [Suspect]
     Active Substance: MIRTAZAPINE
     Dosage: UNK
     Route: 048

REACTIONS (5)
  - Pollakiuria [Unknown]
  - Insomnia [Unknown]
  - Counterfeit product administered [Unknown]
  - Drug ineffective [Unknown]
  - Suspected counterfeit product [Unknown]
